FAERS Safety Report 20727081 (Version 4)
Quarter: 2022Q2

REPORT INFORMATION
  Report Type: Report from Study
  Country: US (occurrence: None)
  Receive Date: 20220419
  Receipt Date: 20220510
  Transmission Date: 20220721
  Serious: Yes (Death, Life-Threatening, Hospitalization)
  Sender: FDA-Public Use
  Company Number: US-ROCHE-3074831

PATIENT
  Age: 75 Year
  Sex: Female
  Weight: 48.5 kg

DRUGS (1)
  1. ATEZOLIZUMAB [Suspect]
     Active Substance: ATEZOLIZUMAB
     Indication: Non-small cell lung cancer
     Dosage: AND CYCLES 2-3 WERE GIVEN UNEVENTFULLY ON 14/OCT//2021, AND 04/NOV//2021.?LAST ADMINISTERED DATE: 09
     Route: 041
     Dates: start: 20210923

REACTIONS (5)
  - Encephalopathy [Recovered/Resolved]
  - Hypoxia [Recovered/Resolved]
  - Respiratory failure [Fatal]
  - Acidosis [Recovered/Resolved]
  - Sinus tachycardia [Unknown]

NARRATIVE: CASE EVENT DATE: 20220209
